FAERS Safety Report 17959611 (Version 1)
Quarter: 2020Q2

REPORT INFORMATION
  Report Type: Spontaneous
  Country: CN (occurrence: CN)
  Receive Date: 20200630
  Receipt Date: 20200630
  Transmission Date: 20200714
  Serious: Yes (Hospitalization)
  Sender: FDA-Public Use
  Company Number: CN-SPECGX-T202001186

PATIENT
  Age: 67 Year
  Sex: Female
  Weight: 45 kg

DRUGS (1)
  1. OXYCODONE/ACETAMINOPHEN [Suspect]
     Active Substance: ACETAMINOPHEN\OXYCODONE HYDROCHLORIDE
     Indication: ANALGESIC THERAPY
     Dosage: 1 DOSAGE FORM, TID
     Route: 048
     Dates: start: 20200522, end: 20200522

REACTIONS (5)
  - Muscular weakness [Recovering/Resolving]
  - Dizziness [Recovered/Resolved]
  - Dysarthria [Unknown]
  - Depression [Unknown]
  - Somnolence [Unknown]

NARRATIVE: CASE EVENT DATE: 20200522
